FAERS Safety Report 23732300 (Version 2)
Quarter: 2024Q2

REPORT INFORMATION
  Report Type: Spontaneous
  Country: US (occurrence: US)
  Receive Date: 20240411
  Receipt Date: 20240418
  Transmission Date: 20240716
  Serious: Yes (Life-Threatening, Hospitalization, Other)
  Sender: FDA-Public Use
  Company Number: US-MLMSERVICE-20240328-4916539-1

PATIENT
  Age: 60 Year
  Sex: Female

DRUGS (5)
  1. HEPARIN SODIUM [Suspect]
     Active Substance: HEPARIN SODIUM
     Indication: Acute myocardial infarction
     Dosage: UNK
  2. APIXABAN [Suspect]
     Active Substance: APIXABAN
     Indication: Acute myocardial infarction
     Dosage: UNK
     Route: 048
  3. APIXABAN [Suspect]
     Active Substance: APIXABAN
     Dosage: UNK
     Route: 048
  4. ASPIRIN [Suspect]
     Active Substance: ASPIRIN
     Indication: Acute myocardial infarction
     Dosage: UNK
     Route: 048
  5. ASPIRIN [Suspect]
     Active Substance: ASPIRIN
     Dosage: UNK
     Route: 048

REACTIONS (5)
  - Lower gastrointestinal haemorrhage [Recovering/Resolving]
  - Shock haemorrhagic [Recovering/Resolving]
  - Angina pectoris [Unknown]
  - Acute myocardial infarction [Unknown]
  - Off label use [Unknown]
